FAERS Safety Report 8822903 (Version 2)
Quarter: 2014Q3

REPORT INFORMATION
  Report Type: Report from Study
  Country: US (occurrence: US)
  Receive Date: 20121003
  Receipt Date: 20140916
  Transmission Date: 20150326
  Serious: Yes (Other)
  Sender: FDA-Public Use
  Company Number: US-ROCHE-1130827

PATIENT
  Sex: Male
  Weight: 89.89 kg

DRUGS (17)
  1. NEUPOGEN [Suspect]
     Active Substance: FILGRASTIM
     Indication: PRODUCT USED FOR UNKNOWN INDICATION
     Route: 058
  2. ADRIAMYCIN [Concomitant]
     Active Substance: DOXORUBICIN HYDROCHLORIDE
  3. PREDNISONE. [Concomitant]
     Active Substance: PREDNISONE
  4. LEVAQUIN [Concomitant]
     Active Substance: LEVOFLOXACIN
     Indication: UPPER RESPIRATORY TRACT INFECTION
  5. VINCRISTINE [Concomitant]
     Active Substance: VINCRISTINE
     Route: 042
  6. DEXAMETHASONE. [Concomitant]
     Active Substance: DEXAMETHASONE
  7. PROCRIT [Concomitant]
     Active Substance: ERYTHROPOIETIN
     Route: 058
     Dates: start: 20010802
  8. TYLENOL [Concomitant]
     Active Substance: ACETAMINOPHEN
  9. RITUXAN [Suspect]
     Active Substance: RITUXIMAB
     Indication: NON-HODGKIN^S LYMPHOMA
     Route: 042
     Dates: start: 20010823
  10. AREDIA [Concomitant]
     Active Substance: PAMIDRONATE DISODIUM
     Route: 065
  11. BENADRYL [Concomitant]
     Active Substance: DIPHENHYDRAMINE HYDROCHLORIDE
  12. CYCLOPHOSPHAMIDE. [Concomitant]
     Active Substance: CYCLOPHOSPHAMIDE
  13. ONCOVIN [Concomitant]
     Active Substance: VINCRISTINE SULFATE
  14. DEMEROL [Concomitant]
     Active Substance: MEPERIDINE HYDROCHLORIDE
     Route: 042
  15. PROCRIT [Concomitant]
     Active Substance: ERYTHROPOIETIN
     Route: 058
  16. COUMADIN [Concomitant]
     Active Substance: WARFARIN SODIUM
  17. ANZEMET [Concomitant]
     Active Substance: DOLASETRON MESYLATE

REACTIONS (7)
  - Splenomegaly [Unknown]
  - Fatigue [Unknown]
  - Cough [Recovered/Resolved]
  - Upper respiratory tract infection [Recovered/Resolved]
  - Rales [Unknown]
  - Chills [Recovered/Resolved]
  - Deep vein thrombosis [Unknown]
